FAERS Safety Report 11116880 (Version 2)
Quarter: 2015Q2

REPORT INFORMATION
  Report Type: Spontaneous
  Country: BR (occurrence: BR)
  Receive Date: 20150515
  Receipt Date: 20150604
  Transmission Date: 20150821
  Serious: Yes (Hospitalization, Other)
  Sender: FDA-Public Use
  Company Number: BR-PFIZER INC-2015140126

PATIENT
  Age: 51 Year
  Sex: Female

DRUGS (2)
  1. LIPITOR [Suspect]
     Active Substance: ATORVASTATIN CALCIUM
     Indication: HYPERCHOLESTEROLAEMIA
     Dosage: 20 MG, DAILY
     Dates: end: 2015
  2. LIPITOR [Suspect]
     Active Substance: ATORVASTATIN CALCIUM
     Indication: BLOOD CHOLESTEROL
     Dosage: 10 MG, UNSPECIFIED FREQUENCY
     Dates: start: 2013, end: 201504

REACTIONS (16)
  - Hypersensitivity [Recovered/Resolved]
  - Dry skin [Unknown]
  - Blister [Unknown]
  - Erythema [Unknown]
  - Skin exfoliation [Unknown]
  - Thrombocytopenia [Unknown]
  - Blood disorder [Recovered/Resolved]
  - Lymphatic disorder [Recovered/Resolved]
  - Immune system disorder [Recovered/Resolved]
  - Swelling [Unknown]
  - Platelet count decreased [Recovering/Resolving]
  - Serum ferritin decreased [Recovering/Resolving]
  - Pruritus [Unknown]
  - Iron deficiency [Recovering/Resolving]
  - Skin disorder [Recovered/Resolved]
  - Urticaria [Unknown]

NARRATIVE: CASE EVENT DATE: 2013
